FAERS Safety Report 9046337 (Version 1)
Quarter: 2013Q1

REPORT INFORMATION
  Report Type: Report from Study
  Country: CA (occurrence: CA)
  Receive Date: 20130201
  Receipt Date: 20130201
  Transmission Date: 20140127
  Serious: Yes (Other)
  Sender: FDA-Public Use
  Company Number: CA-JNJFOC-20130112365

PATIENT
  Age: 54 None
  Sex: Female
  Weight: 82 kg

DRUGS (11)
  1. REMICADE [Suspect]
     Indication: RHEUMATOID ARTHRITIS
     Route: 042
     Dates: start: 20120604
  2. DEXILANT [Concomitant]
     Route: 065
  3. ZOPICLONE [Concomitant]
     Route: 065
  4. COVERSYL [Concomitant]
     Route: 065
  5. PRAVASTATIN [Concomitant]
     Route: 065
  6. DILTIAZEM CD [Concomitant]
     Route: 065
  7. FUROSEMIDE [Concomitant]
     Route: 065
  8. PRISTIQ [Concomitant]
     Route: 065
  9. CELEBREX [Concomitant]
     Dosage: PRN
     Route: 065
  10. PREDNISONE [Concomitant]
     Route: 065
  11. DOMPERIDONE [Concomitant]
     Route: 065

REACTIONS (2)
  - Upper limb fracture [Not Recovered/Not Resolved]
  - Fall [Not Recovered/Not Resolved]
